FAERS Safety Report 24783347 (Version 3)
Quarter: 2025Q1

REPORT INFORMATION
  Report Type: Spontaneous
  Country: US (occurrence: US)
  Receive Date: 20241227
  Receipt Date: 20250123
  Transmission Date: 20250409
  Serious: No
  Sender: BAYER HEALTHCARE PHARMACEUTICALS INC.
  Company Number: US-BAYER-2024A182918

PATIENT
  Age: 17 Year
  Sex: Female

DRUGS (1)
  1. MIRENA [Suspect]
     Active Substance: LEVONORGESTREL
     Indication: Contraception
     Dosage: 20?G/DAY
     Route: 015
     Dates: start: 20241203, end: 20241203

REACTIONS (3)
  - Procedural pain [Recovered/Resolved]
  - Complication of device insertion [None]
  - Procedural anxiety [Recovered/Resolved]

NARRATIVE: CASE EVENT DATE: 20241203
